FAERS Safety Report 9841001 (Version 1)
Quarter: 2014Q1

REPORT INFORMATION
  Report Type: Spontaneous
  Country: US (occurrence: None)
  Receive Date: 20140123
  Receipt Date: 20140123
  Transmission Date: 20141002
  Serious: Yes (Life-Threatening, Hospitalization)
  Sender: FDA-Public Use
  Company Number: None

PATIENT
  Age: 76 Year
  Sex: Male
  Weight: 73.8 kg

DRUGS (1)
  1. DABIGATRAN [Suspect]
     Indication: ATRIAL FIBRILLATION
     Route: 048

REACTIONS (10)
  - Vertigo [None]
  - Vomiting [None]
  - Hyperhidrosis [None]
  - Fall [None]
  - Head injury [None]
  - Hypoacusis [None]
  - Condition aggravated [None]
  - Cerebral haemorrhage [None]
  - International normalised ratio increased [None]
  - Metastases to central nervous system [None]
